FAERS Safety Report 4382815-1 (Version None)
Quarter: 2004Q2

REPORT INFORMATION
  Report Type: 
  Country: None (occurrence: None)
  Receive Date: 20040617
  Receipt Date: 20040604
  Transmission Date: 20050107
  Serious: Yes (Hospitalization, Other)
  Sender: FDA-Public Use
  Company Number: US-JNJFOC-20040406574

PATIENT
  Age: 57 Year
  Sex: Female
  Weight: 74.3899 kg

DRUGS (8)
  1. REMICADE [Suspect]
     Indication: RHEUMATOID ARTHRITIS
     Dosage: SEE IMAGE
     Route: 042
     Dates: start: 20020901
  2. REMICADE [Suspect]
     Indication: RHEUMATOID ARTHRITIS
     Dosage: SEE IMAGE
     Route: 042
     Dates: start: 20040311
  3. REMICADE [Suspect]
     Indication: RHEUMATOID ARTHRITIS
     Dosage: SEE IMAGE
     Route: 042
     Dates: start: 20040429
  4. ZYRTEC [Concomitant]
  5. TYLENOL [Concomitant]
  6. CELEBREX [Concomitant]
  7. FOLIC ACID [Concomitant]
  8. METHOTREXATE [Concomitant]

REACTIONS (9)
  - CHEST DISCOMFORT [None]
  - CHEST PAIN [None]
  - CORONARY ARTERY OCCLUSION [None]
  - ELECTROCARDIOGRAM T WAVE AMPLITUDE DECREASED [None]
  - FLUSHING [None]
  - HYPOTENSION [None]
  - INFUSION RELATED REACTION [None]
  - LEFT VENTRICULAR END-DIASTOLIC PRESSURE INCREASED [None]
  - RECTAL POLYP [None]
